FAERS Safety Report 14445879 (Version 1)
Quarter: 2018Q1

REPORT INFORMATION
  Report Type: Spontaneous
  Country: ID (occurrence: ID)
  Receive Date: 20180126
  Receipt Date: 20180126
  Transmission Date: 20180509
  Serious: Yes (Death, Other)
  Sender: FDA-Public Use
  Company Number: ID-ASTRAZENECA-2018SE10775

PATIENT

DRUGS (1)
  1. IRESSA [Suspect]
     Active Substance: GEFITINIB
     Indication: LUNG NEOPLASM MALIGNANT
     Route: 048

REACTIONS (3)
  - Fracture [Unknown]
  - Death [Fatal]
  - Accident [Unknown]
